FAERS Safety Report 25220863 (Version 1)
Quarter: 2025Q2

REPORT INFORMATION
  Report Type: Spontaneous
  Country: US (occurrence: US)
  Receive Date: 20250421
  Receipt Date: 20250421
  Transmission Date: 20250717
  Serious: Yes (Death, Hospitalization)
  Sender: AMGEN
  Company Number: US-AMGEN-USASP2025074630

PATIENT
  Age: 71 Year
  Sex: Male

DRUGS (7)
  1. PREDNISONE [Suspect]
     Active Substance: PREDNISONE
     Indication: Transaminases increased
     Route: 065
  2. PREDNISONE [Suspect]
     Active Substance: PREDNISONE
     Indication: Immune-mediated myasthenia gravis
     Dosage: UNK UNK, QD, 1 GRAM PER KILOGRAM
     Route: 065
  3. PREDNISONE [Suspect]
     Active Substance: PREDNISONE
     Dosage: UNK UNK, QD, 2 GRAM PER KILOGRAM,
     Route: 065
  4. PREDNISONE [Suspect]
     Active Substance: PREDNISONE
     Route: 065
  5. PREDNISONE [Suspect]
     Active Substance: PREDNISONE
     Route: 065
  6. FLUOROURACIL\LEUCOVORIN CALCIUM\OXALIPLATIN [Concomitant]
     Active Substance: FLUOROURACIL\LEUCOVORIN CALCIUM\OXALIPLATIN
     Route: 065
  7. NIVOLUMAB [Concomitant]
     Active Substance: NIVOLUMAB

REACTIONS (7)
  - Death [Fatal]
  - General physical health deterioration [Unknown]
  - Failure to thrive [Unknown]
  - Dysphonia [Unknown]
  - Iron deficiency anaemia [Unknown]
  - Neutrophilia [Unknown]
  - Off label use [Unknown]
